FAERS Safety Report 6285218-8 (Version None)
Quarter: 2009Q3

REPORT INFORMATION
  Report Type: 
  Country: None (occurrence: None)
  Receive Date: 20090727
  Receipt Date: 20090720
  Transmission Date: 20100115
  Serious: Yes (Life-Threatening, Other)
  Sender: FDA-Public Use
  Company Number: PHHY2009DE24061

PATIENT
  Sex: Female

DRUGS (14)
  1. LEPONEX [Suspect]
     Indication: SCHIZOAFFECTIVE DISORDER
     Dosage: 12.5-125 MG/DAY
     Route: 048
     Dates: start: 20090205, end: 20090217
  2. LEPONEX [Suspect]
     Dosage: 150 MG/DAY
     Route: 048
     Dates: start: 20090218, end: 20090304
  3. L-THYROXIN [Concomitant]
     Dosage: 150 UG/DAY
     Route: 048
  4. ASPIRIN [Concomitant]
     Dosage: 100 MG/DAY
     Route: 048
  5. OXYGESIC [Concomitant]
     Dosage: 40 MG/DAY
     Route: 048
     Dates: end: 20090207
  6. OXYGESIC [Concomitant]
     Dosage: 60 MG/DAY
     Route: 048
     Dates: start: 20090218
  7. VALPROATE SODIUM [Concomitant]
     Dosage: 400-2400 MG/DAY
     Route: 048
     Dates: start: 20090203, end: 20090220
  8. VALPROATE SODIUM [Concomitant]
     Dosage: 3000 MG/DAY
     Route: 048
     Dates: start: 20090221, end: 20090302
  9. VALPROATE SODIUM [Concomitant]
     Dosage: 1500 MG/DAY
     Route: 048
     Dates: start: 20090303, end: 20090304
  10. VALPROATE SODIUM [Concomitant]
     Dosage: UNK
  11. COTRIM [Concomitant]
     Dosage: 960 MG/DAY
     Route: 048
     Dates: start: 20090303
  12. COTRIM [Concomitant]
     Dosage: 1920 MG/DAY
     Route: 048
     Dates: start: 20090304, end: 20090306
  13. INSULIN [Concomitant]
     Dosage: DEPENDS ON GLUCOSE IN BLOOD
     Route: 058
  14. L-DOPA [Concomitant]
     Dosage: 100/35 MG 5 TIMES DAILY
     Route: 048

REACTIONS (15)
  - ARTHRALGIA [None]
  - BLOOD CREATINE PHOSPHOKINASE INCREASED [None]
  - BLOOD CREATINE PHOSPHOKINASE MB INCREASED [None]
  - BUNDLE BRANCH BLOCK LEFT [None]
  - CEREBRAL INFARCTION [None]
  - DYSARTHRIA [None]
  - EJECTION FRACTION DECREASED [None]
  - FIBRIN D DIMER INCREASED [None]
  - GENERAL PHYSICAL HEALTH DETERIORATION [None]
  - LEFT VENTRICULAR FAILURE [None]
  - MITRAL VALVE INCOMPETENCE [None]
  - MYOCARDIAL INFARCTION [None]
  - RESPIRATORY DISORDER [None]
  - TROPONIN T INCREASED [None]
  - URINARY TRACT INFECTION [None]
